FAERS Safety Report 9752423 (Version 3)
Quarter: 2014Q1

REPORT INFORMATION
  Report Type: Spontaneous
  Country: US (occurrence: US)
  Receive Date: 20131213
  Receipt Date: 20140206
  Transmission Date: 20141002
  Serious: No
  Sender: FDA-Public Use
  Company Number: US-PFIZER INC-2013355371

PATIENT
  Age: 37 Year
  Sex: Female

DRUGS (1)
  1. SERTRALINE HCL [Suspect]
     Dosage: 50 MG, UNK

REACTIONS (2)
  - Dysgeusia [Unknown]
  - Product taste abnormal [Unknown]
